FAERS Safety Report 8204469-6 (Version None)
Quarter: 2012Q1

REPORT INFORMATION
  Report Type: 
  Country: None (occurrence: None)
  Receive Date: 20120313
  Receipt Date: 20120306
  Transmission Date: 20120608
  Serious: Yes (Other)
  Sender: FDA-Public Use
  Company Number: US-BAYER-2012-022881

PATIENT
  Age: 62 Year
  Sex: Female
  Weight: 72.562 kg

DRUGS (5)
  1. ALEVE (CAPLET) [Suspect]
     Indication: BACK PAIN
     Dosage: 220 MG, TID
     Route: 048
     Dates: start: 20120301
  2. LUNESTA [Concomitant]
  3. ALEVE (CAPLET) [Suspect]
     Dosage: 440 MG, TID
     Route: 048
     Dates: start: 20120301
  4. TOPAMAX [Concomitant]
  5. FENTANYL [Concomitant]

REACTIONS (2)
  - VENTRICULAR EXTRASYSTOLES [None]
  - BACK PAIN [None]
